FAERS Safety Report 21506642 (Version 2)
Quarter: 2022Q4

REPORT INFORMATION
  Report Type: Report from Study
  Country: US (occurrence: US)
  Receive Date: 20221026
  Receipt Date: 20221216
  Transmission Date: 20230113
  Serious: No
  Sender: FDA-Public Use
  Company Number: US-ABBVIE-4153478

PATIENT
  Sex: Female

DRUGS (4)
  1. HUMIRA [Suspect]
     Active Substance: ADALIMUMAB
     Indication: Uveitis
     Dosage: CITRATE FREE
     Route: 058
  2. HUMIRA [Suspect]
     Active Substance: ADALIMUMAB
     Route: 058
     Dates: start: 202210
  3. PFIZER-BIONTECH COVID-19 VACCINE [Concomitant]
     Active Substance: TOZINAMERAN
     Indication: COVID-19 immunisation
     Dosage: FIRST DOSE/ONE IN ONCE
     Route: 030
     Dates: start: 20210326, end: 20210326
  4. PFIZER-BIONTECH COVID-19 VACCINE [Concomitant]
     Active Substance: TOZINAMERAN
     Indication: COVID-19 immunisation
     Dosage: SECOND DOSE/ONE IN ONCE
     Route: 030
     Dates: start: 20210416, end: 20210416

REACTIONS (7)
  - Injection site vesicles [Not Recovered/Not Resolved]
  - Injection site swelling [Not Recovered/Not Resolved]
  - Atrial fibrillation [Unknown]
  - Eye haemorrhage [Unknown]
  - Intraocular pressure decreased [Unknown]
  - Eye pain [Not Recovered/Not Resolved]
  - Injection site erythema [Not Recovered/Not Resolved]
